FAERS Safety Report 15888723 (Version 1)
Quarter: 2019Q1

REPORT INFORMATION
  Report Type: Spontaneous
  Country: CH (occurrence: CH)
  Receive Date: 20190130
  Receipt Date: 20190130
  Transmission Date: 20190417
  Serious: Yes (Hospitalization, Other)
  Sender: FDA-Public Use
  Company Number: CH-TEVA-2019-CH-1004928

PATIENT
  Age: 78 Year
  Sex: Male
  Weight: 97 kg

DRUGS (21)
  1. TRANSIPEG FORTE [Concomitant]
     Indication: CONSTIPATION
     Dosage: 2 DOSAGE FORMS DAILY;
     Route: 048
  2. AMIODARONE-MEPHA 200MG [Suspect]
     Active Substance: AMIODARONE
     Indication: ATRIAL FIBRILLATION
     Dosage: 200 MILLIGRAM DAILY;
     Route: 048
     Dates: start: 201805, end: 20181218
  3. MAGNESIOCARD ORANGE 10MMOL [Concomitant]
     Dosage: 20 MILLIMOL DAILY;
     Route: 048
  4. ASPIRIN CARDIO 100MG [Concomitant]
     Active Substance: ASPIRIN
     Dosage: 100 MILLIGRAM DAILY;
     Route: 048
  5. HUMALOG MIX75/25 [Concomitant]
     Active Substance: INSULIN LISPRO
     Indication: DIABETES MELLITUS
     Dosage: 20 IU (INTERNATIONAL UNIT) DAILY;
     Route: 058
  6. ALDACTONE [Concomitant]
     Active Substance: SPIRONOLACTONE
     Dosage: 25 MILLIGRAM DAILY;
     Route: 048
  7. LAXOBERON [Concomitant]
     Active Substance: SODIUM PICOSULFATE
     Indication: CONSTIPATION
     Dosage: 30 GTT DAILY;
     Route: 048
  8. NITRODERM TTS 5MG/24H [Concomitant]
     Indication: ANGINA PECTORIS
     Route: 003
  9. TRUSOPT [Concomitant]
     Active Substance: DORZOLAMIDE HYDROCHLORIDE
     Dosage: 2 GTT DAILY;
     Route: 047
  10. NOVALGIN (METAMIZOLE SODIUM) [Concomitant]
     Active Substance: METAMIZOLE SODIUM
     Dosage: 2000 MILLIGRAM DAILY;
     Route: 048
  11. CINNAGERON 75MG [Concomitant]
     Dosage: 75 MILLIGRAM DAILY;
     Route: 048
  12. TRIMIPRAMIN SANDOZ 25MG [Concomitant]
     Indication: DEPRESSION
     Dosage: 25 MILLIGRAM DAILY;
     Route: 048
  13. PRIMPERAN 10MG [Concomitant]
     Dosage: 10 MILLIGRAM DAILY;
     Route: 048
  14. SPIRICORT 5MG [Concomitant]
     Dosage: 5 MILLIGRAM DAILY;
     Route: 048
  15. SERETIDE [Concomitant]
     Active Substance: FLUTICASONE PROPIONATE\SALMETEROL XINAFOATE
     Dosage: 1000 MICROGRAM DAILY;
     Route: 055
  16. TRANSTEC [Concomitant]
     Active Substance: BUPRENORPHINE
     Route: 003
  17. ATORVA PFIZER 40MG [Interacting]
     Active Substance: ATORVASTATIN CALCIUM
     Indication: CORONARY ARTERY DISEASE
     Dosage: 40 MILLIGRAM DAILY; POSSIBLE RENEWED INTAKE 12-18.12.2018
     Route: 048
     Dates: end: 20181206
  18. BELOC ZOK 50MG [Concomitant]
     Dosage: 50 MILLIGRAM DAILY;
     Route: 048
  19. TOREM 200MG [Concomitant]
     Dosage: 200 MILLIGRAM DAILY;
     Route: 048
  20. ZOLDORM 10MG [Concomitant]
     Dosage: 10 MILLIGRAM DAILY;
     Route: 048
  21. PANTOPRAZOL AXAPHARM 40MG [Concomitant]
     Indication: GASTRITIS
     Dosage: 40 MILLIGRAM DAILY;
     Route: 048

REACTIONS (4)
  - Drug interaction [Recovering/Resolving]
  - Hypothyroidism [Recovering/Resolving]
  - Myxoedema [Recovering/Resolving]
  - Blood creatine phosphokinase BB increased [Recovering/Resolving]

NARRATIVE: CASE EVENT DATE: 201805
